FAERS Safety Report 13435975 (Version 1)
Quarter: 2017Q2

REPORT INFORMATION
  Report Type: Spontaneous
  Country: US (occurrence: US)
  Receive Date: 20170412
  Receipt Date: 20170412
  Transmission Date: 20170830
  Serious: No
  Sender: FDA-Public Use
  Company Number: US-SA-2016SA070587

PATIENT
  Age: 52 Year
  Sex: Female

DRUGS (1)
  1. ALLEGRA [Suspect]
     Active Substance: FEXOFENADINE HYDROCHLORIDE
     Dosage: START DATE: 2 DAY AGO
     Route: 065
     Dates: end: 20160405

REACTIONS (3)
  - Pruritus [Not Recovered/Not Resolved]
  - Extra dose administered [Unknown]
  - Rash [Not Recovered/Not Resolved]
